FAERS Safety Report 20228417 (Version 3)
Quarter: 2022Q1

REPORT INFORMATION
  Report Type: Report from Study
  Country: US (occurrence: US)
  Receive Date: 20211224
  Receipt Date: 20220119
  Transmission Date: 20220424
  Serious: Yes (Life-Threatening, Hospitalization, Other)
  Sender: FDA-Public Use
  Company Number: US-GILEAD-2021-0562441

PATIENT
  Age: 69 Year
  Sex: Male
  Weight: 79.5 kg

DRUGS (14)
  1. REMDESIVIR [Suspect]
     Active Substance: REMDESIVIR
     Indication: COVID-19
     Dosage: 100 MG, QD
     Route: 042
     Dates: start: 20211204, end: 20211207
  2. CYCLOSPORINE [Suspect]
     Active Substance: CYCLOSPORINE
     Indication: COVID-19
     Dosage: 200 MG, QD
     Route: 048
     Dates: start: 20211207, end: 20211207
  3. DECADRON [Concomitant]
     Active Substance: DEXAMETHASONE
     Indication: COVID-19
     Dosage: LESS THAN OR EQUAL TO 8 MG, 3 DOSES PRIOR TO STUDY ENROLLMENT
     Dates: end: 20211206
  4. DECADRON [Concomitant]
     Active Substance: DEXAMETHASONE
     Dosage: 6 MG IMJECTABLE
     Dates: start: 20211204
  5. OLUMIANT [Concomitant]
     Active Substance: BARICITINIB
     Indication: COVID-19
     Dosage: 4 MG
     Route: 048
     Dates: start: 20211204
  6. BENZOCAINE-MENTHOL [Concomitant]
     Indication: Oropharyngeal pain
     Dosage: UNK
     Route: 048
     Dates: start: 20211206
  7. GLUTOSE [Concomitant]
     Active Substance: DEXTROSE
     Indication: COVID-19
     Dosage: 15 G
     Dates: start: 20211204
  8. OMEPRAZOLE [Concomitant]
     Active Substance: OMEPRAZOLE
     Indication: Gastrooesophageal reflux disease
     Dosage: 40 MG
     Route: 048
     Dates: start: 20211204
  9. OMEPRAZOLE [Concomitant]
     Active Substance: OMEPRAZOLE
     Dosage: UNK
     Dates: start: 20110830
  10. LOVENOX [Concomitant]
     Active Substance: ENOXAPARIN SODIUM
     Indication: COVID-19
     Dosage: 40 MG INJECTABLE
     Dates: start: 20211204
  11. HUMULIN U [Concomitant]
     Active Substance: INSULIN HUMAN
     Indication: Diabetes mellitus
     Dosage: 5U INJECTABLE
  12. PROVENTIL [Concomitant]
     Active Substance: ALBUTEROL
     Indication: COVID-19
     Dosage: 2.5 MG, NEBULIZER
     Dates: start: 20211204
  13. APRESOLINE HYDROCHLORIDE [Concomitant]
     Active Substance: HYDRALAZINE HYDROCHLORIDE
     Dosage: UNK
     Dates: start: 20211208
  14. LABETALOL [Concomitant]
     Active Substance: LABETALOL\LABETALOL HYDROCHLORIDE
     Dosage: UNK
     Dates: start: 20211208

REACTIONS (2)
  - Hypersensitivity [Not Recovered/Not Resolved]
  - Peripheral ischaemia [Recovering/Resolving]

NARRATIVE: CASE EVENT DATE: 20211207
